FAERS Safety Report 6825317-2 (Version None)
Quarter: 2010Q3

REPORT INFORMATION
  Report Type: 
  Country: None (occurrence: None)
  Receive Date: 20100708
  Receipt Date: 20061227
  Transmission Date: 20110219
  Serious: No
  Sender: FDA-Public Use
  Company Number: US-PFIZER INC-2007001161

PATIENT
  Sex: Female
  Weight: 62.14 kg

DRUGS (7)
  1. CHANTIX [Suspect]
     Indication: SMOKING CESSATION THERAPY
     Route: 048
     Dates: start: 20061221, end: 20070108
  2. CLONAZEPAM [Concomitant]
     Route: 048
  3. WARFARIN SODIUM [Concomitant]
     Route: 048
  4. HALDOL [Concomitant]
     Route: 048
  5. FUROSEMIDE [Concomitant]
     Route: 048
  6. PRUNE [Concomitant]
     Indication: CONSTIPATION
     Dates: start: 20070106
  7. LAXATIVES [Concomitant]
     Indication: CONSTIPATION
     Dates: start: 20070106

REACTIONS (9)
  - ABDOMINAL PAIN UPPER [None]
  - CONSTIPATION [None]
  - DIARRHOEA [None]
  - DRUG DEPENDENCE [None]
  - FLATULENCE [None]
  - INSOMNIA [None]
  - MALAISE [None]
  - ORAL DISCOMFORT [None]
  - VOMITING [None]
